FAERS Safety Report 13446420 (Version 1)
Quarter: 2017Q2

REPORT INFORMATION
  Report Type: Spontaneous
  Country: US (occurrence: US)
  Receive Date: 20170417
  Receipt Date: 20170417
  Transmission Date: 20170830
  Serious: Yes (Hospitalization, Other)
  Sender: FDA-Public Use
  Company Number: US-DRREDDYS-USA/USA/17/0088722

PATIENT
  Age: 30 Year
  Sex: Male

DRUGS (2)
  1. DULOXETINE DELAYED-RELEASE CAPSULES [Suspect]
     Active Substance: DULOXETINE
     Indication: AFFECTIVE DISORDER
     Route: 065
  2. DULOXETINE DELAYED-RELEASE CAPSULES [Suspect]
     Active Substance: DULOXETINE
     Indication: PAIN
     Route: 065

REACTIONS (2)
  - Stiff person syndrome [Recovering/Resolving]
  - Condition aggravated [Recovering/Resolving]
